FAERS Safety Report 22124632 (Version 1)
Quarter: 2023Q1

REPORT INFORMATION
  Report Type: Spontaneous
  Country: FR (occurrence: FR)
  Receive Date: 20230322
  Receipt Date: 20230322
  Transmission Date: 20230417
  Serious: Yes (Hospitalization)
  Sender: FDA-Public Use
  Company Number: None

PATIENT

DRUGS (3)
  1. BUPRENORPHINE [Suspect]
     Active Substance: BUPRENORPHINE
     Indication: Product used for unknown indication
     Dosage: UNK
     Route: 065
  2. TRAMADOL HYDROCHLORIDE [Suspect]
     Active Substance: TRAMADOL HYDROCHLORIDE
     Indication: Product used for unknown indication
     Dosage: UNK
     Route: 065
  3. MORPHINE SULFATE [Suspect]
     Active Substance: MORPHINE SULFATE
     Indication: Product used for unknown indication
     Dosage: UNK
     Route: 065

REACTIONS (9)
  - Photophobia [Recovered/Resolved]
  - Hypertonia [Recovered/Resolved]
  - Abnormal behaviour [Recovered/Resolved]
  - Paraesthesia [Unknown]
  - Headache [Recovering/Resolving]
  - Oxygen saturation decreased [Unknown]
  - Drug abuse [Unknown]
  - Agitation [Recovered/Resolved]
  - Miosis [Recovered/Resolved]
